FAERS Safety Report 10210483 (Version 1)
Quarter: 2014Q2

REPORT INFORMATION
  Report Type: Spontaneous
  Country: GB (occurrence: GB)
  Receive Date: 20140602
  Receipt Date: 20140602
  Transmission Date: 20141212
  Serious: Yes (Other)
  Sender: FDA-Public Use
  Company Number: PHHY2014GB065110

PATIENT
  Age: 23 Year
  Sex: Female
  Weight: 64.5 kg

DRUGS (6)
  1. CLARITHROMYCIN [Suspect]
     Indication: SINUSITIS
     Dosage: 250 MG, BID
     Route: 048
     Dates: start: 20140512, end: 20140514
  2. AMOXICILLIN [Concomitant]
  3. CALCIUM [Concomitant]
  4. FEXOFENADINE HYDROCHLORIDE [Concomitant]
     Indication: SEASONAL ALLERGY
     Dosage: 180 MG, UNK
  5. NASONEX [Concomitant]
  6. YASMIN [Concomitant]

REACTIONS (6)
  - Psychomotor hyperactivity [Recovering/Resolving]
  - Anxiety [Recovering/Resolving]
  - Hyperhidrosis [Recovering/Resolving]
  - Insomnia [Recovering/Resolving]
  - Insomnia [Unknown]
  - Tremor [Unknown]
